FAERS Safety Report 23787609 (Version 1)
Quarter: 2024Q2

REPORT INFORMATION
  Report Type: Spontaneous
  Country: US (occurrence: None)
  Receive Date: 20240425
  Receipt Date: 20240425
  Transmission Date: 20240715
  Serious: Yes (Hospitalization)
  Sender: FDA-Public Use
  Company Number: None

PATIENT
  Age: 79 Year
  Sex: Male
  Weight: 64.4 kg

DRUGS (2)
  1. CARVEDILOL [Suspect]
     Active Substance: CARVEDILOL
     Indication: Hypertension
     Dosage: ONE TAB BID PO?
     Route: 048
     Dates: start: 20220805, end: 20230315
  2. SACUBITRIL\VALSARTAN [Suspect]
     Active Substance: SACUBITRIL\VALSARTAN
     Indication: Cardiac failure
     Dosage: ONE TAB HBID PO?
     Route: 048
     Dates: start: 20220513, end: 20230315

REACTIONS (2)
  - Hypotension [None]
  - Hospitalisation [None]

NARRATIVE: CASE EVENT DATE: 20230315
